FAERS Safety Report 5980357-0 (Version None)
Quarter: 2008Q4

REPORT INFORMATION
  Report Type: 
  Country: None (occurrence: None)
  Receive Date: 20081205
  Receipt Date: 20080122
  Transmission Date: 20090506
  Serious: No
  Sender: FDA-Public Use
  Company Number: A0644041A

PATIENT
  Age: 58 Year
  Sex: Female

DRUGS (1)
  1. COMMIT [Suspect]
     Dates: start: 20070321

REACTIONS (2)
  - PHARYNGEAL OEDEMA [None]
  - SENSATION OF FOREIGN BODY [None]
